FAERS Safety Report 6459142-1 (Version None)
Quarter: 2009Q4

REPORT INFORMATION
  Report Type: 
  Country: None (occurrence: None)
  Receive Date: 20091125
  Receipt Date: 20091125
  Transmission Date: 20100525
  Serious: No
  Sender: FDA-Public Use
  Company Number: None

PATIENT
  Age: 42 Year
  Sex: Female

DRUGS (1)
  1. TUBERSOL [Suspect]
     Indication: TUBERCULIN TEST
     Dosage: I.D.
     Dates: start: 20071129

REACTIONS (4)
  - ARTHRALGIA [None]
  - INJECTION SITE ERYTHEMA [None]
  - PRURITUS [None]
  - SWELLING [None]
